FAERS Safety Report 8420334-3 (Version None)
Quarter: 2012Q2

REPORT INFORMATION
  Report Type: 
  Country: None (occurrence: None)
  Receive Date: 20120607
  Receipt Date: 20120530
  Transmission Date: 20120825
  Serious: Yes (Hospitalization)
  Sender: FDA-Public Use
  Company Number: US-US-EMD SERONO, INC.-7026791

PATIENT
  Sex: Female
  Weight: 89 kg

DRUGS (5)
  1. TOPAMAX [Concomitant]
     Indication: CONVULSION
  2. SEIZURE MEDICATION [Concomitant]
     Indication: CONVULSION
  3. VIMPAT [Concomitant]
     Indication: CONVULSION
  4. REBIF [Suspect]
     Indication: PRODUCT USED FOR UNKNOWN INDICATION
     Route: 058
     Dates: start: 20100625
  5. ASPIRIN [Concomitant]
     Indication: PRODUCT USED FOR UNKNOWN INDICATION

REACTIONS (4)
  - INFLUENZA LIKE ILLNESS [None]
  - MULTIPLE SCLEROSIS [None]
  - GRAND MAL CONVULSION [None]
  - INJECTION SITE PAIN [None]
